FAERS Safety Report 22526069 (Version 1)
Quarter: 2023Q2

REPORT INFORMATION
  Report Type: Report from Study
  Country: US (occurrence: US)
  Receive Date: 20230606
  Receipt Date: 20230606
  Transmission Date: 20230722
  Serious: Yes (Hospitalization, Other)
  Sender: FDA-Public Use
  Company Number: US-ABBVIE-5184433

PATIENT
  Sex: Male

DRUGS (1)
  1. IMBRUVICA [Suspect]
     Active Substance: IBRUTINIB
     Indication: B-cell lymphoma
     Dosage: FORM STRENGTH: 420 MG
     Route: 048
     Dates: start: 20211003

REACTIONS (5)
  - Anaemia [Unknown]
  - Haemoglobin decreased [Not Recovered/Not Resolved]
  - Gastrointestinal haemorrhage [Unknown]
  - Full blood count abnormal [Not Recovered/Not Resolved]
  - Gastric ulcer [Recovering/Resolving]
